FAERS Safety Report 7072212-2 (Version None)
Quarter: 2010Q4

REPORT INFORMATION
  Report Type: 
  Country: None (occurrence: None)
  Receive Date: 20101029
  Receipt Date: 20091221
  Transmission Date: 20110411
  Serious: No
  Sender: FDA-Public Use
  Company Number: A0836208A

PATIENT
  Age: 49 Year
  Sex: Male

DRUGS (3)
  1. ADVAIR DISKUS 100/50 [Suspect]
     Dosage: 1PUFF TWICE PER DAY
     Route: 055
  2. LOTREL [Concomitant]
  3. CLARITIN [Concomitant]

REACTIONS (2)
  - OBESITY [None]
  - OVERWEIGHT [None]
